FAERS Safety Report 6258276-4 (Version None)
Quarter: 2009Q3

REPORT INFORMATION
  Report Type: 
  Country: None (occurrence: None)
  Receive Date: 20090702
  Receipt Date: 20090702
  Transmission Date: 20100115
  Serious: Yes (Hospitalization, Other)
  Sender: FDA-Public Use
  Company Number: None

PATIENT
  Age: 32 Year
  Sex: Female
  Weight: 61.2356 kg

DRUGS (2)
  1. CHANTIX [Suspect]
     Indication: SMOKING CESSATION THERAPY
     Dosage: 1 DAILY PO
     Route: 048
  2. CHANTIX [Suspect]
     Dosage: 2 DAILY PO
     Route: 048

REACTIONS (6)
  - ANXIETY [None]
  - BIPOLAR II DISORDER [None]
  - DEPRESSION [None]
  - ECONOMIC PROBLEM [None]
  - PANIC DISORDER [None]
  - SUICIDAL IDEATION [None]
